FAERS Safety Report 9907036 (Version 2)
Quarter: 2014Q1

REPORT INFORMATION
  Report Type: Spontaneous
  Country: US (occurrence: US)
  Receive Date: 20140218
  Receipt Date: 20140218
  Transmission Date: 20141002
  Serious: Yes (Hospitalization)
  Sender: FDA-Public Use
  Company Number: US-US-EMD SERONO, INC.-238853K07USA

PATIENT
  Age: 51 Year
  Sex: Female
  Weight: 54 kg

DRUGS (5)
  1. REBIF [Suspect]
     Indication: MULTIPLE SCLEROSIS
     Route: 058
     Dates: start: 20070624, end: 20071007
  2. REBIF [Suspect]
     Route: 058
     Dates: start: 20071014
  3. PREMARIN /00073001/ [Suspect]
     Indication: MENOPAUSE
     Dates: start: 200603, end: 20071007
  4. NEXIUM                             /01479302/ [Concomitant]
     Indication: REFLUX GASTRITIS
     Dates: start: 200703
  5. ZOLOFT                             /01011401/ [Concomitant]
     Indication: ANXIETY

REACTIONS (2)
  - Acute myocardial infarction [Recovered/Resolved]
  - Urinary tract infection [Recovering/Resolving]
